FAERS Safety Report 19931196 (Version 4)
Quarter: 2022Q2

REPORT INFORMATION
  Report Type: Spontaneous
  Country: DE (occurrence: DE)
  Receive Date: 20211007
  Receipt Date: 20220406
  Transmission Date: 20220721
  Serious: Yes (Life-Threatening, Other)
  Sender: FDA-Public Use
  Company Number: DE-CELLTRION HEALTHCARE HUNGARY KFT-2021DE007990

PATIENT
  Age: 76 Year
  Sex: Male

DRUGS (29)
  1. ACYCLOVIR [Suspect]
     Active Substance: ACYCLOVIR
     Indication: Prophylaxis
     Dosage: 800 MILLIGRAM, BID (800 MG 2X/DAY)
     Route: 065
  2. METHOTREXATE [Suspect]
     Active Substance: METHOTREXATE
     Indication: Diffuse large B-cell lymphoma
     Dosage: 4 GRAM PER SQUARE METRE (4 G/M2 (DAY 1) (R-MTX))
     Route: 065
  3. METHOTREXATE [Suspect]
     Active Substance: METHOTREXATE
     Indication: Central nervous system lymphoma
     Dosage: UNK
     Route: 065
  4. DOXORUBICIN [Suspect]
     Active Substance: DOXORUBICIN
     Indication: Central nervous system lymphoma
     Dosage: 50 MILLIGRAM/SQ. METER, 50 MG/M2 (DAY 1) (R-CHOP)
     Route: 042
  5. DOXORUBICIN [Suspect]
     Active Substance: DOXORUBICIN
     Indication: Diffuse large B-cell lymphoma
     Dosage: UNK
     Route: 065
  6. CYTARABINE [Suspect]
     Active Substance: CYTARABINE
     Indication: Diffuse large B-cell lymphoma
     Dosage: 4 GRAM PER SQUARE METRE (4 G/M2 (DAYS 1-2) (R-ARAC/TT))
     Route: 065
  7. CYTARABINE [Suspect]
     Active Substance: CYTARABINE
     Indication: Central nervous system lymphoma
     Dosage: UNK
     Route: 065
  8. VINCRISTINE [Suspect]
     Active Substance: VINCRISTINE
     Indication: Diffuse large B-cell lymphoma
     Dosage: 2 / 1 MG ABS (DAY 1) (R-CHOP)
     Route: 042
  9. VINCRISTINE [Suspect]
     Active Substance: VINCRISTINE
     Indication: Central nervous system lymphoma
     Dosage: UNK
     Route: 065
  10. VINCRISTINE [Suspect]
     Active Substance: VINCRISTINE
     Dosage: 2 MILLIGRAM, AS A PART OF R-CHOP REGIMEN
     Route: 042
  11. THIOTEPA [Suspect]
     Active Substance: THIOTEPA
     Indication: Central nervous system lymphoma
     Dosage: 5 MILLIGRAM/SQ. METER ON DAY - 5/ - 4 (R-HD-BCNU/TT)
     Route: 065
  12. THIOTEPA [Suspect]
     Active Substance: THIOTEPA
     Indication: Diffuse large B-cell lymphoma
     Dosage: 40 MILLIGRAM/SQ. METER (40 MG/M2 (DAY 2) (R-ARAC/TT) )
     Route: 065
  13. THIOTEPA [Suspect]
     Active Substance: THIOTEPA
     Dosage: 5 MILLIGRAM/SQ. METER, BID (2 X 5 MG/M2 ON DAY - 5/ - 4 (R-HD-BCNU/TT))
  14. PREDNISONE [Suspect]
     Active Substance: PREDNISONE
     Indication: Diffuse large B-cell lymphoma
     Dosage: 100 MILLIGRAM (100 MG ABS (DAY 1 TO 5) (R-CHOP))
     Route: 042
  15. PREDNISONE [Suspect]
     Active Substance: PREDNISONE
     Indication: Central nervous system lymphoma
     Dosage: UNK
     Route: 065
  16. BICNU [Suspect]
     Active Substance: CARMUSTINE
     Indication: Diffuse large B-cell lymphoma
     Dosage: 400 MILLIGRAM/SQ. METER (400 MG/M2 (DAY 6) (R-HD-BCNU/TT))
     Route: 065
  17. BICNU [Suspect]
     Active Substance: CARMUSTINE
     Indication: Central nervous system lymphoma
     Dosage: UNK
     Route: 065
  18. RITUXIMAB [Suspect]
     Active Substance: RITUXIMAB
     Indication: Central nervous system lymphoma
     Dosage: 1400 MG ABS (DAY 1) (R-ARAC/TT)
     Route: 058
  19. RITUXIMAB [Suspect]
     Active Substance: RITUXIMAB
     Indication: Diffuse large B-cell lymphoma
     Dosage: 1400 MILLIGRAM ABS (DAY 1) (R-CHOP)
     Route: 058
  20. RITUXIMAB [Suspect]
     Active Substance: RITUXIMAB
     Dosage: 1400 MILLIGRAM ABS (DAY 0) (R-MX)
     Route: 058
  21. RITUXIMAB [Suspect]
     Active Substance: RITUXIMAB
     Dosage: 1400 MILLIGRAM 1400 MG ABS (DAY 7) (R-HD-BCNU/TT)
     Route: 058
  22. RITUXIMAB [Suspect]
     Active Substance: RITUXIMAB
     Dosage: 375 MILLIGRAM/SQ. METER (375 MG/M2 (DAY 0) (R-MTX))
     Route: 042
  23. RITUXIMAB [Suspect]
     Active Substance: RITUXIMAB
     Dosage: 375 MILLIGRAM/SQ. METER (375 MG/M2 (DAY 1) (R-CHOP) )
     Route: 042
  24. RITUXIMAB [Suspect]
     Active Substance: RITUXIMAB
     Dosage: 1400 MILLIGRAM ABS (DAY 7) (R-CHOP)
     Route: 058
  25. RITUXIMAB [Suspect]
     Active Substance: RITUXIMAB
     Dosage: UNK, AS A PART OF R-CHOP AND R-MTX REGIMEN
  26. CYCLOPHOSPHAMIDE [Suspect]
     Active Substance: CYCLOPHOSPHAMIDE
     Indication: Diffuse large B-cell lymphoma
     Dosage: 750 MILLIGRAM/SQ. METER (750 MG/M2 (DAY 1) (R-CHOP))
     Route: 042
  27. CYCLOPHOSPHAMIDE [Suspect]
     Active Substance: CYCLOPHOSPHAMIDE
     Indication: Central nervous system lymphoma
     Dosage: UNK
     Route: 065
  28. LEUCOVORIN [Suspect]
     Active Substance: LEUCOVORIN
     Indication: Product used for unknown indication
     Dosage: UNK
     Route: 065
  29. GRANULOCYTE COLONY-STIMULATING FACTOR NOS [Suspect]
     Active Substance: GRANULOCYTE COLONY-STIMULATING FACTOR NOS
     Indication: Autologous haematopoietic stem cell transplant
     Dosage: 10 MICROGRAM/KILOGRAM (10 UG/KG BODY WEIGHT )

REACTIONS (1)
  - Haematotoxicity [Unknown]
